FAERS Safety Report 11575647 (Version 1)
Quarter: 2015Q3

REPORT INFORMATION
  Report Type: Spontaneous
  Country: US (occurrence: US)
  Receive Date: 20150916
  Receipt Date: 20150916
  Transmission Date: 20151125
  Serious: No
  Sender: FDA-Public Use
  Company Number: US-ELI_LILLY_AND_COMPANY-US200906006432

PATIENT
  Age: 77 Year
  Sex: Female

DRUGS (2)
  1. FORTEO [Suspect]
     Active Substance: TERIPARATIDE
     Dates: end: 20090613
  2. FORTEO [Suspect]
     Active Substance: TERIPARATIDE
     Dosage: UNK, UNK
     Dates: start: 20090620

REACTIONS (8)
  - Rash generalised [Unknown]
  - Rash macular [Unknown]
  - Muscular weakness [Unknown]
  - Cardiac discomfort [Unknown]
  - Superficial vein prominence [Unknown]
  - Erythema [Unknown]
  - Malaise [Unknown]
  - Paraesthesia [Unknown]

NARRATIVE: CASE EVENT DATE: 200906
